FAERS Safety Report 9616997 (Version 1)
Quarter: 2013Q4

REPORT INFORMATION
  Report Type: Spontaneous
  Country: US (occurrence: None)
  Receive Date: 20131011
  Receipt Date: 20131011
  Transmission Date: 20140711
  Serious: Yes (Death)
  Sender: FDA-Public Use
  Company Number: None

PATIENT
  Age: 75 Year
  Sex: Male

DRUGS (10)
  1. XARELTO [Suspect]
     Indication: THROMBOSIS
     Dosage: 1 PILL, 1 PILL AT BEDTIME, BY MOUTH
     Route: 048
     Dates: start: 20130628, end: 20130710
  2. SIMVASTATIN [Concomitant]
  3. ASPIRIN [Concomitant]
  4. COZAAR [Concomitant]
  5. LASIX [Concomitant]
  6. LEVOTHROID [Concomitant]
  7. OMEPRAZOLE [Concomitant]
  8. POTASSIUM CHLORIDE [Concomitant]
  9. ASPIRIN [Concomitant]
  10. FISH OIL [Concomitant]

REACTIONS (1)
  - Haemorrhagic stroke [None]
